FAERS Safety Report 6704144-0 (Version None)
Quarter: 2010Q2

REPORT INFORMATION
  Report Type: 
  Country: None (occurrence: None)
  Receive Date: 20100430
  Receipt Date: 20100323
  Transmission Date: 20101027
  Serious: Yes (Other)
  Sender: FDA-Public Use
  Company Number: FR-PFIZER INC-2009304428

PATIENT
  Age: 40 Year
  Sex: Male

DRUGS (3)
  1. VORICONAZOLE [Suspect]
     Indication: ASPERGILLOSIS
     Dosage: UNK
     Dates: start: 20020901
  2. TACROLIMUS [Concomitant]
     Indication: IMMUNOSUPPRESSION
  3. MYCOPHENOLATE SODIUM [Concomitant]
     Indication: IMMUNOSUPPRESSION

REACTIONS (3)
  - ACTINIC KERATOSIS [None]
  - PHOTOSENSITIVITY REACTION [None]
  - SQUAMOUS CELL CARCINOMA [None]
